FAERS Safety Report 24019717 (Version 1)
Quarter: 2024Q2

REPORT INFORMATION
  Report Type: Spontaneous
  Country: FR (occurrence: FR)
  Receive Date: 20240627
  Receipt Date: 20240627
  Transmission Date: 20240715
  Serious: Yes (Other)
  Sender: FDA-Public Use
  Company Number: None

PATIENT
  Age: 68 Year
  Sex: Female

DRUGS (8)
  1. OLANZAPINE [Suspect]
     Active Substance: OLANZAPINE
     Indication: Delusion
     Dosage: 10 MILLIGRAM, QD (INCREASED DOSE ON 23-APR-2024)
     Route: 048
     Dates: start: 20240409
  2. CLOMIPRAMINE [Suspect]
     Active Substance: CLOMIPRAMINE
     Indication: Depression
     Dosage: 125 MILLIGRAM, QD
     Route: 048
     Dates: start: 20240507
  3. CLOMIPRAMINE [Suspect]
     Active Substance: CLOMIPRAMINE
     Dosage: 75 MILLIGRAM, QD
     Route: 048
     Dates: start: 20240503, end: 20240504
  4. CLOMIPRAMINE [Suspect]
     Active Substance: CLOMIPRAMINE
     Dosage: 50 MILLIGRAM, QD
     Route: 048
     Dates: start: 20240501, end: 20240502
  5. CLOMIPRAMINE [Suspect]
     Active Substance: CLOMIPRAMINE
     Dosage: 100 MILLIGRAM, QD
     Route: 048
     Dates: start: 20240505, end: 20240506
  6. CLOMIPRAMINE [Suspect]
     Active Substance: CLOMIPRAMINE
     Dosage: 25 MILLIGRAM, QD
     Route: 048
     Dates: start: 20240429, end: 20240430
  7. MIDODRINE [Suspect]
     Active Substance: MIDODRINE
     Indication: Depression
     Dosage: 2.5 MILLIGRAM, TID (2.5 MG X 3 /DAY)
     Route: 048
     Dates: start: 20240312
  8. LORAZEPAM [Suspect]
     Active Substance: LORAZEPAM
     Indication: Depression
     Dosage: 5.5 MILLIGRAM, QD (3 X 1 MG + 2.5 MG / DAY INCREASED ON 03-MAY-2024)
     Route: 048
     Dates: start: 20240416

REACTIONS (1)
  - Liver injury [Recovering/Resolving]

NARRATIVE: CASE EVENT DATE: 20240510
